FAERS Safety Report 11122598 (Version 1)
Quarter: 2015Q2

REPORT INFORMATION
  Report Type: Spontaneous
  Country: US (occurrence: US)
  Receive Date: 20150519
  Receipt Date: 20150519
  Transmission Date: 20150821
  Serious: Yes (Death, Other)
  Sender: FDA-Public Use
  Company Number: US-TEVA-562360USA

PATIENT
  Age: 22 Day
  Sex: Female
  Weight: 1.5 kg

DRUGS (1)
  1. FLUCONAZOLE. [Suspect]
     Active Substance: FLUCONAZOLE
     Indication: CANDIDA INFECTION
     Dosage: 10 G PER KG ONCE DAILY
     Route: 042

REACTIONS (2)
  - Toxic epidermal necrolysis [Fatal]
  - Multi-organ failure [Fatal]
